FAERS Safety Report 12373388 (Version 3)
Quarter: 2016Q3

REPORT INFORMATION
  Report Type: Report from Study
  Country: BR (occurrence: BR)
  Receive Date: 20160516
  Receipt Date: 20160824
  Transmission Date: 20161109
  Serious: Yes (Other)
  Sender: FDA-Public Use
  Company Number: BR-JNJFOC-20160512458

PATIENT
  Sex: Female

DRUGS (10)
  1. HIDANTAL [Concomitant]
     Active Substance: PHENYTOIN SODIUM
     Route: 065
  2. DIAMICRON [Concomitant]
     Active Substance: GLICLAZIDE
     Route: 065
  3. FORXIGA [Concomitant]
     Active Substance: DAPAGLIFLOZIN
  4. SIMPONI [Suspect]
     Active Substance: GOLIMUMAB
     Indication: RHEUMATOID ARTHRITIS
     Route: 058
     Dates: start: 20150413
  5. GLIFAGE [Concomitant]
     Active Substance: METFORMIN HYDROCHLORIDE
  6. OXCARBAZEPINE. [Concomitant]
     Active Substance: OXCARBAZEPINE
  7. PHENYTOIN. [Concomitant]
     Active Substance: PHENYTOIN
  8. SELOZOK [Concomitant]
     Active Substance: METOPROLOL SUCCINATE
  9. CEFSPAN [Concomitant]
     Active Substance: CEFIXIME
     Route: 065
  10. ATENOLOL. [Concomitant]
     Active Substance: ATENOLOL
     Route: 065

REACTIONS (11)
  - Injection site pain [Unknown]
  - Device malfunction [Unknown]
  - Pain in extremity [Unknown]
  - Respiratory tract infection [Unknown]
  - Peripheral swelling [Unknown]
  - Injection site haemorrhage [Unknown]
  - Localised infection [Unknown]
  - Arthralgia [Unknown]
  - Nosocomial infection [Unknown]
  - Inflammation [Unknown]
  - Wrong technique in product usage process [Unknown]

NARRATIVE: CASE EVENT DATE: 2016
